FAERS Safety Report 21719310 (Version 1)
Quarter: 2022Q4

REPORT INFORMATION
  Report Type: Other
  Country: NG (occurrence: None)
  Receive Date: 20221213
  Receipt Date: 20221213
  Transmission Date: 20230113
  Serious: Yes (Other)
  Sender: FDA-Public Use
  Company Number: NG-ROCHE-3240471

PATIENT
  Sex: Female
  Weight: 52 kg

DRUGS (2)
  1. AVASTIN [Suspect]
     Active Substance: BEVACIZUMAB
     Indication: Ovarian cancer
     Route: 042
     Dates: start: 20220408
  2. DOCETAXEL [Concomitant]
     Active Substance: DOCETAXEL

REACTIONS (1)
  - Haematocrit decreased [Not Recovered/Not Resolved]

NARRATIVE: CASE EVENT DATE: 20221106
